FAERS Safety Report 10024908 (Version 2)
Quarter: 2014Q2

REPORT INFORMATION
  Report Type: Spontaneous
  Country: GB (occurrence: GB)
  Receive Date: 20140320
  Receipt Date: 20140509
  Transmission Date: 20141212
  Serious: Yes (Hospitalization)
  Sender: FDA-Public Use
  Company Number: GB-BAYER-2014-037675

PATIENT
  Age: 62 Year
  Sex: Male

DRUGS (1)
  1. CLOTRIMAZOLE [Suspect]
     Indication: FUNGAL INFECTION
     Route: 065

REACTIONS (5)
  - Cellulitis [Unknown]
  - Dermatitis [Unknown]
  - Pruritus [Unknown]
  - Erythema [Unknown]
  - Lip swelling [Unknown]
